FAERS Safety Report 6132720-5 (Version None)
Quarter: 2009Q1

REPORT INFORMATION
  Report Type: 
  Country: None (occurrence: None)
  Receive Date: 20090325
  Receipt Date: 20090325
  Transmission Date: 20090719
  Serious: No
  Sender: FDA-Public Use
  Company Number: None

PATIENT
  Age: 50 Year
  Sex: Female
  Weight: 54.4316 kg

DRUGS (2)
  1. BONIVA [Suspect]
     Indication: GASTROOESOPHAGEAL REFLUX DISEASE
     Dosage: 3 MG Q 3 MO. I.V.
     Route: 042
     Dates: start: 20090318
  2. BONIVA [Suspect]
     Indication: OSTEOPOROSIS
     Dosage: 3 MG Q 3 MO. I.V.
     Route: 042
     Dates: start: 20090318

REACTIONS (2)
  - INFUSION SITE ERYTHEMA [None]
  - INFUSION SITE PAIN [None]
